FAERS Safety Report 9884112 (Version 1)
Quarter: 2014Q1

REPORT INFORMATION
  Report Type: Spontaneous
  Country: US (occurrence: US)
  Receive Date: 20140210
  Receipt Date: 20140210
  Transmission Date: 20141002
  Serious: No
  Sender: FDA-Public Use
  Company Number: US-ALLERGAN-1316324US

PATIENT
  Age: 59 Year
  Sex: Female

DRUGS (2)
  1. BOTOX COSMETIC [Suspect]
     Indication: SKIN WRINKLING
     Dosage: 26 UNITS, SINGLE
     Route: 030
     Dates: start: 20130905, end: 20130905
  2. JUVEDERM [Suspect]
     Indication: SKIN WRINKLING
     Dosage: UNK
     Dates: start: 20130905, end: 20130905

REACTIONS (6)
  - Off label use [Unknown]
  - Drug ineffective [Unknown]
  - Headache [Unknown]
  - Headache [Unknown]
  - Pain [Unknown]
  - Herpes virus infection [Recovered/Resolved]
